FAERS Safety Report 4788908-9 (Version None)
Quarter: 2005Q4

REPORT INFORMATION
  Report Type: 
  Country: None (occurrence: None)
  Receive Date: 20051004
  Receipt Date: 20050919
  Transmission Date: 20060501
  Serious: Yes (Death)
  Sender: FDA-Public Use
  Company Number: US_0504115380

PATIENT
  Age: 74 Year
  Sex: Female
  Weight: 50 kg

DRUGS (6)
  1. ALIMTA [Suspect]
     Indication: METASTASES TO LIVER
     Dosage: 770 MG
     Dates: start: 20050309, end: 20050309
  2. ALIMTA [Suspect]
     Indication: METASTASES TO LUNG
     Dosage: 770 MG
     Dates: start: 20050309, end: 20050309
  3. ALIMTA [Suspect]
     Indication: UTERINE CANCER
     Dosage: 770 MG
     Dates: start: 20050309, end: 20050309
  4. LEUCOVORIN [Concomitant]
  5. FOLIC ACID [Concomitant]
  6. VITAMIN B-12 [Concomitant]

REACTIONS (2)
  - GENERAL PHYSICAL HEALTH DETERIORATION [None]
  - HEPATIC FAILURE [None]
